FAERS Safety Report 5074235-1 (Version None)
Quarter: 2006Q3

REPORT INFORMATION
  Report Type: 
  Country: None (occurrence: None)
  Receive Date: 20060803
  Receipt Date: 20060726
  Transmission Date: 20061208
  Serious: Yes (Hospitalization)
  Sender: FDA-Public Use
  Company Number: 2006-04148

PATIENT
  Age: 68 Year
  Sex: Male

DRUGS (6)
  1. FLUOROURACIL [Suspect]
     Indication: ANAL CANCER
     Dosage: 1000 MG/M2, INTRAVENOUS
     Route: 042
  2. FLUOROURACIL [Suspect]
     Indication: METASTASES TO BLADDER
     Dosage: 1000 MG/M2, INTRAVENOUS
     Route: 042
  3. FLUOROURACIL [Suspect]
     Indication: METASTASES TO PROSTATE
     Dosage: 1000 MG/M2, INTRAVENOUS
     Route: 042
  4. CISPLATIN [Concomitant]
  5. DEXAMETHASONE [Concomitant]
  6. ONDANSETRON HCL [Concomitant]

REACTIONS (1)
  - ENCEPHALOPATHY [None]
